FAERS Safety Report 7089110-0 (Version None)
Quarter: 2010Q4

REPORT INFORMATION
  Report Type: 
  Country: None (occurrence: None)
  Receive Date: 20101029
  Receipt Date: 20101018
  Transmission Date: 20110411
  Serious: Yes (Hospitalization)
  Sender: FDA-Public Use
  Company Number: 2010EN000306

PATIENT
  Age: 71 Year
  Sex: Male

DRUGS (2)
  1. ABELCET [Suspect]
     Indication: PNEUMONIA FUNGAL
     Dosage: 400 MG; X1; IV
     Route: 042
     Dates: start: 20101012, end: 20101012
  2. SULFOTRIM [Concomitant]

REACTIONS (2)
  - CHILLS [None]
  - DISCOMFORT [None]
